FAERS Safety Report 11150812 (Version 2)
Quarter: 2015Q2

REPORT INFORMATION
  Report Type: Spontaneous
  Country: BR (occurrence: None)
  Receive Date: 20150528
  Receipt Date: 20150612
  Transmission Date: 20150821
  Serious: Yes (Hospitalization)
  Sender: FDA-Public Use
  Company Number: 2015RN000022

PATIENT
  Age: 4 Year
  Sex: Male
  Weight: 18 kg

DRUGS (2)
  1. ZOVIRAX [Suspect]
     Active Substance: ACYCLOVIR
     Indication: VARICELLA
     Route: 048
     Dates: start: 20150506, end: 20150510
  2. VANCOMYCIN [Concomitant]
     Active Substance: VANCOMYCIN

REACTIONS (7)
  - Drug ineffective [None]
  - Varicella [None]
  - Pneumonia [None]
  - Product quality issue [None]
  - Product packaging issue [None]
  - Condition aggravated [None]
  - Nonspecific reaction [None]

NARRATIVE: CASE EVENT DATE: 20150506
